FAERS Safety Report 5262727-1 (Version None)
Quarter: 2007Q1

REPORT INFORMATION
  Report Type: 
  Country: None (occurrence: None)
  Receive Date: 20070312
  Receipt Date: 20070306
  Transmission Date: 20070707
  Serious: Yes (Other)
  Sender: FDA-Public Use
  Company Number: 2007AP01395

PATIENT
  Age: 36 Year
  Sex: Male

DRUGS (4)
  1. SEROQUEL [Suspect]
     Indication: SCHIZOPHRENIA
     Dosage: TWO YEARS DURATION AT PRESENT
     Route: 048
     Dates: start: 20050101
  2. RISPERDAL [Suspect]
     Route: 048
  3. MEILAX [Concomitant]
     Route: 048
  4. LORAMET [Concomitant]
     Route: 048

REACTIONS (1)
  - KETOSIS [None]
